FAERS Safety Report 13003032 (Version 1)
Quarter: 2016Q4

REPORT INFORMATION
  Report Type: Spontaneous
  Country: US (occurrence: US)
  Receive Date: 20161206
  Receipt Date: 20161206
  Transmission Date: 20170207
  Serious: Yes (Disabling)
  Sender: FDA-Public Use
  Company Number: None

PATIENT
  Age: 34 Year
  Sex: Female
  Weight: 162 kg

DRUGS (16)
  1. OXYCODONE [Concomitant]
     Active Substance: OXYCODONE
  2. BIOFREEZE [Concomitant]
     Active Substance: MENTHOL
  3. ICY HOT [Concomitant]
     Active Substance: MENTHOL\METHYL SALICYLATE
  4. LEVOFLOXACIN. [Suspect]
     Active Substance: LEVOFLOXACIN
     Indication: KIDNEY INFECTION
     Dosage: ?          QUANTITY:1 TABLET(S);?
     Route: 048
     Dates: start: 20161111, end: 20161124
  5. PLAQUENIL [Concomitant]
     Active Substance: HYDROXYCHLOROQUINE SULFATE
  6. DULOXETINE. [Concomitant]
     Active Substance: DULOXETINE
  7. ATENOLOL. [Concomitant]
     Active Substance: ATENOLOL
  8. FLEXERIL [Concomitant]
     Active Substance: CYCLOBENZAPRINE HYDROCHLORIDE
  9. ASPERCREME NOS [Concomitant]
     Active Substance: MENTHOL\TROLAMINE SALICYLATE
  10. TYLENOL [Concomitant]
     Active Substance: ACETAMINOPHEN
  11. SALONPAS PAIN RELIEF [Concomitant]
     Active Substance: MENTHOL\METHYL SALICYLATE
  12. FOLIC ACID. [Concomitant]
     Active Substance: FOLIC ACID
  13. SUMATRIPTAN. [Concomitant]
     Active Substance: SUMATRIPTAN
  14. METHOTREXATE. [Concomitant]
     Active Substance: METHOTREXATE
  15. XARELTO [Concomitant]
     Active Substance: RIVAROXABAN
  16. DEPO-PROVERA [Concomitant]
     Active Substance: MEDROXYPROGESTERONE ACETATE

REACTIONS (5)
  - Musculoskeletal stiffness [None]
  - Tendonitis [None]
  - Tendon pain [None]
  - Arthralgia [None]
  - Musculoskeletal pain [None]

NARRATIVE: CASE EVENT DATE: 20161128
